FAERS Safety Report 17348734 (Version 2)
Quarter: 2020Q1

REPORT INFORMATION
  Report Type: Report from Study
  Country: US (occurrence: US)
  Receive Date: 20200129
  Receipt Date: 20200317
  Transmission Date: 20200409
  Serious: Yes (Death)
  Sender: FDA-Public Use
  Company Number: US-EXELIXIS-CABO-19024494

PATIENT
  Age: 65 Year
  Sex: Male
  Weight: 117.91 kg

DRUGS (34)
  1. PROAIR HFA [Concomitant]
     Active Substance: ALBUTEROL SULFATE
     Dosage: UNK
  2. DIAZEPAM. [Concomitant]
     Active Substance: DIAZEPAM
     Dosage: UNK
  3. CALCIUM CARBONATE. [Concomitant]
     Active Substance: CALCIUM CARBONATE
  4. SAW PALMETTO [Concomitant]
     Active Substance: HERBALS\SAW PALMETTO
     Dosage: UNK
  5. POTASSIUM CHLORIDE. [Concomitant]
     Active Substance: POTASSIUM CHLORIDE
     Dosage: UNK
  6. TRAMADOL. [Concomitant]
     Active Substance: TRAMADOL
     Dosage: UNK
  7. MIRTAZAPINE. [Concomitant]
     Active Substance: MIRTAZAPINE
     Dosage: UNK
  8. GERI-KOT [Concomitant]
     Active Substance: SENNOSIDES
  9. CABOMETYX [Suspect]
     Active Substance: CABOZANTINIB S-MALATE
     Dosage: 40 MG, QD
     Route: 048
     Dates: start: 20191104
  10. FUROSEMIDE. [Concomitant]
     Active Substance: FUROSEMIDE
     Dosage: UNK
  11. CEPHALEXIN. [Concomitant]
     Active Substance: CEPHALEXIN
  12. TEA TREE [Concomitant]
     Active Substance: GLYCERIN
  13. GERIKOT [Concomitant]
     Dosage: UNK
  14. FENTANYL. [Concomitant]
     Active Substance: FENTANYL
     Dosage: UNK
  15. MAGNESIUM [Concomitant]
     Active Substance: MAGNESIUM
     Dosage: UNK
  16. TYLENOL [Concomitant]
     Active Substance: ACETAMINOPHEN
     Dosage: UNK
  17. XARELTO [Concomitant]
     Active Substance: RIVAROXABAN
     Dosage: UNK
  18. OXYCODONE [Concomitant]
     Active Substance: OXYCODONE
  19. ERLOTINIB [Concomitant]
     Active Substance: ERLOTINIB
  20. CABOMETYX [Suspect]
     Active Substance: CABOZANTINIB S-MALATE
     Indication: NON-SMALL CELL LUNG CANCER
     Dosage: 40 MG, QD
     Route: 048
     Dates: end: 20191028
  21. MILK THISTLE [Concomitant]
     Active Substance: DIETARY SUPPLEMENT\HERBALS\MILK THISTLE
     Dosage: UNK
  22. PROBIOTICS NOS [Concomitant]
     Active Substance: PROBIOTICS NOS
     Dosage: UNK
  23. TAMSULOSIN [Concomitant]
     Active Substance: TAMSULOSIN
     Dosage: UNK
  24. SUMATRIPTAN SUCCINATE. [Concomitant]
     Active Substance: SUMATRIPTAN SUCCINATE
     Dosage: UNK
  25. CLOTRIMAZOLE / BETAMETH [Concomitant]
     Active Substance: BETAMETHASONE DIPROPIONATE\CLOTRIMAZOLE
     Dosage: UNK
  26. DOXYCYCLINE. [Concomitant]
     Active Substance: DOXYCYCLINE
  27. TARCEVA [Suspect]
     Active Substance: ERLOTINIB HYDROCHLORIDE
     Indication: PRODUCT USED FOR UNKNOWN INDICATION
     Dosage: UNK
  28. ACETYLCYSTEINE. [Concomitant]
     Active Substance: ACETYLCYSTEINE
     Dosage: UNK
  29. MULTIVITAMIN [Concomitant]
     Active Substance: VITAMINS
     Dosage: UNK
  30. INCRUSE ELLIPTA [Concomitant]
     Active Substance: UMECLIDINIUM BROMIDE
     Dosage: UNK
  31. METHYLPREDNISOLONE. [Concomitant]
     Active Substance: METHYLPREDNISOLONE
  32. LEVOFLOXACIN. [Concomitant]
     Active Substance: LEVOFLOXACIN
  33. FOLIC ACID. [Concomitant]
     Active Substance: FOLIC ACID
     Dosage: UNK
  34. TURMERIC [Concomitant]
     Active Substance: HERBALS\TURMERIC
     Dosage: UNK

REACTIONS (10)
  - Sunburn [Recovering/Resolving]
  - Skin ulcer [Recovering/Resolving]
  - Off label use [Unknown]
  - Erythema [Unknown]
  - Fatigue [Unknown]
  - Adverse drug reaction [Unknown]
  - Rib fracture [Unknown]
  - Pruritus [Unknown]
  - Death [Fatal]
  - Peripheral swelling [Recovering/Resolving]

NARRATIVE: CASE EVENT DATE: 20191013
